FAERS Safety Report 20552422 (Version 3)
Quarter: 2023Q2

REPORT INFORMATION
  Report Type: Report from Study
  Country: KR (occurrence: KR)
  Receive Date: 20220304
  Receipt Date: 20230424
  Transmission Date: 20230721
  Serious: Yes (Hospitalization)
  Sender: FDA-Public Use
  Company Number: KR-GLAXOSMITHKLINE-KR2022GSK039549

PATIENT
  Age: 75 Year
  Sex: Male
  Weight: 54 kg

DRUGS (8)
  1. FLUTICASONE FUROATE\UMECLIDINIUM BROMIDE\VILANTEROL TRIFENATATE [Suspect]
     Active Substance: FLUTICASONE FUROATE\UMECLIDINIUM BROMIDE\VILANTEROL TRIFENATATE
     Indication: Chronic obstructive pulmonary disease
     Dosage: UNK
     Route: 055
     Dates: start: 20211202, end: 20220301
  2. FLUTICASONE FUROATE\UMECLIDINIUM BROMIDE\VILANTEROL TRIFENATATE [Suspect]
     Active Substance: FLUTICASONE FUROATE\UMECLIDINIUM BROMIDE\VILANTEROL TRIFENATATE
     Dosage: UNK
     Route: 055
     Dates: start: 20220309, end: 20220330
  3. DOXOFYLLINE [Concomitant]
     Active Substance: DOXOFYLLINE
     Indication: Chronic obstructive pulmonary disease
     Dosage: 1 DF, BID
     Route: 048
     Dates: start: 20181220
  4. METHYLPREDNISOLONE [Concomitant]
     Active Substance: METHYLPREDNISOLONE
     Indication: Chronic obstructive pulmonary disease
     Dosage: 3 DF, BID
     Route: 048
     Dates: start: 20211223, end: 20211224
  5. METHYLPREDNISOLONE [Concomitant]
     Active Substance: METHYLPREDNISOLONE
     Dosage: 2 DF, BID
     Route: 048
     Dates: start: 20211225, end: 20220101
  6. BANAN [Concomitant]
     Active Substance: CEFPODOXIME PROXETIL
     Indication: Chronic obstructive pulmonary disease
     Dosage: 1 DF, BID
     Route: 048
     Dates: start: 20211223, end: 20211227
  7. SURFOLASE [Concomitant]
     Indication: Productive cough
     Dosage: 1 DF, BID
     Route: 048
     Dates: start: 20190110
  8. RECOMID [Concomitant]
     Indication: Pain prophylaxis
     Dosage: 1 DF, BID
     Route: 048
     Dates: start: 20211228, end: 20220101

REACTIONS (1)
  - Chronic obstructive pulmonary disease [Recovered/Resolved]

NARRATIVE: CASE EVENT DATE: 20220302
